FAERS Safety Report 7260443-8 (Version None)
Quarter: 2011Q1

REPORT INFORMATION
  Report Type: 
  Country: None (occurrence: None)
  Receive Date: 20110130
  Receipt Date: 20101108
  Transmission Date: 20110831
  Serious: No
  Sender: FDA-Public Use
  Company Number: US-ABBOTT-10P-163-0684482-00

PATIENT
  Age: 58 Year
  Sex: Female

DRUGS (2)
  1. UNKNOWN PAIN MEDICATION [Concomitant]
     Indication: PRODUCT USED FOR UNKNOWN INDICATION
  2. HUMIRA [Suspect]
     Indication: PSORIATIC ARTHROPATHY
     Dates: start: 20101001

REACTIONS (6)
  - JOINT EFFUSION [None]
  - BURSITIS [None]
  - TENDON RUPTURE [None]
  - CARTILAGE ATROPHY [None]
  - MENISCUS LESION [None]
  - MENISCAL DEGENERATION [None]
